FAERS Safety Report 24800721 (Version 1)
Quarter: 2025Q1

REPORT INFORMATION
  Report Type: Report from Study
  Country: ES (occurrence: ES)
  Receive Date: 20250102
  Receipt Date: 20250102
  Transmission Date: 20250408
  Serious: Yes (Other)
  Sender: SK LIFE SCIENCE
  Company Number: ES-ACRAF SpA-2024-036435

PATIENT

DRUGS (16)
  1. XCOPRI [Suspect]
     Active Substance: CENOBAMATE
     Indication: Epilepsy
     Route: 048
     Dates: start: 20240110, end: 20240123
  2. XCOPRI [Suspect]
     Active Substance: CENOBAMATE
     Route: 048
     Dates: start: 20240124, end: 20240206
  3. XCOPRI [Suspect]
     Active Substance: CENOBAMATE
     Route: 048
     Dates: start: 20240207, end: 20240220
  4. XCOPRI [Suspect]
     Active Substance: CENOBAMATE
     Route: 048
     Dates: start: 20240221, end: 20240308
  5. XCOPRI [Suspect]
     Active Substance: CENOBAMATE
     Route: 048
     Dates: start: 20240309, end: 20240507
  6. XCOPRI [Suspect]
     Active Substance: CENOBAMATE
     Route: 048
     Dates: start: 20240508, end: 20240530
  7. XCOPRI [Suspect]
     Active Substance: CENOBAMATE
     Route: 048
     Dates: start: 20240531, end: 20240723
  8. XCOPRI [Suspect]
     Active Substance: CENOBAMATE
     Route: 048
     Dates: start: 20240724, end: 20241104
  9. XCOPRI [Suspect]
     Active Substance: CENOBAMATE
     Route: 048
     Dates: start: 20241106, end: 20241121
  10. XCOPRI [Suspect]
     Active Substance: CENOBAMATE
     Dosage: (200 MG,1 D)
     Route: 048
     Dates: start: 20241121
  11. XCOPRI [Suspect]
     Active Substance: CENOBAMATE
     Dosage: (150 MG,1 D)
     Route: 048
     Dates: start: 20241126
  12. LACOSAMIDE [Concomitant]
     Active Substance: LACOSAMIDE
     Indication: Product used for unknown indication
     Route: 065
     Dates: start: 2018, end: 20240306
  13. LACOSAMIDE [Concomitant]
     Active Substance: LACOSAMIDE
     Route: 065
     Dates: start: 20240307, end: 20240329
  14. LACOSAMIDE [Concomitant]
     Active Substance: LACOSAMIDE
     Route: 065
     Dates: start: 20240330, end: 20240415
  15. LAMOTRIGINE [Concomitant]
     Active Substance: LAMOTRIGINE
     Indication: Product used for unknown indication
     Route: 065
     Dates: start: 2018
  16. FERROUS SULFATE [Concomitant]
     Active Substance: FERROUS SULFATE
     Indication: Iron deficiency
     Route: 065
     Dates: start: 20231102

REACTIONS (1)
  - Skin necrosis [Recovered/Resolved]

NARRATIVE: CASE EVENT DATE: 20241120
